FAERS Safety Report 13333633 (Version 1)
Quarter: 2017Q1

REPORT INFORMATION
  Report Type: Spontaneous
  Country: US (occurrence: US)
  Receive Date: 20170314
  Receipt Date: 20170314
  Transmission Date: 20170428
  Serious: Yes (Hospitalization)
  Sender: FDA-Public Use
  Company Number: US-ASTRAZENECA-2017SE27072

PATIENT
  Age: 82 Year
  Sex: Female

DRUGS (4)
  1. LYRICA [Concomitant]
     Active Substance: PREGABALIN
  2. FENTANYL. [Concomitant]
     Active Substance: FENTANYL
  3. HYDROCODONE [Concomitant]
     Active Substance: HYDROCODONE
  4. MOVANTIK [Suspect]
     Active Substance: NALOXEGOL OXALATE
     Route: 048

REACTIONS (2)
  - Faecaloma [Unknown]
  - Drug ineffective [Unknown]
